FAERS Safety Report 6723890-6 (Version None)
Quarter: 2010Q2

REPORT INFORMATION
  Report Type: 
  Country: None (occurrence: None)
  Receive Date: 20100513
  Receipt Date: 20100305
  Transmission Date: 20101027
  Serious: Yes (Hospitalization, Other)
  Sender: FDA-Public Use
  Company Number: CA-ROCHE-664476

PATIENT
  Sex: Female
  Weight: 99.8 kg

DRUGS (9)
  1. PEGASYS [Suspect]
     Indication: HEPATITIS C
     Route: 058
     Dates: start: 20090415, end: 20090909
  2. COPEGUS [Suspect]
     Indication: HEPATITIS C
     Route: 048
     Dates: start: 20090415, end: 20090909
  3. EPREX [Concomitant]
     Route: 058
     Dates: start: 20090527, end: 20090909
  4. METFORMIN HYDROCHLORIDE [Concomitant]
     Route: 048
  5. GABAPENTIN [Concomitant]
     Indication: PAIN
     Dosage: OTHER INDICATION: TREMORS
     Route: 048
  6. CODEINE SULFATE [Concomitant]
     Indication: PAIN
     Route: 048
  7. ZANTAC [Concomitant]
  8. QUETIAPINE [Concomitant]
  9. AMITRIPTLINE HYDROCHLORIDE TAB [Concomitant]
     Indication: INSOMNIA
     Dosage: AT NIGHT
     Route: 048

REACTIONS (5)
  - ANAEMIA [None]
  - BLOOD CREATININE INCREASED [None]
  - ENCEPHALOPATHY [None]
  - HYPERNATRAEMIA [None]
  - URINARY TRACT INFECTION [None]
